FAERS Safety Report 16030944 (Version 1)
Quarter: 2019Q1

REPORT INFORMATION
  Report Type: Spontaneous
  Country: US (occurrence: US)
  Receive Date: 20190304
  Receipt Date: 20190304
  Transmission Date: 20190418
  Serious: No
  Sender: FDA-Public Use
  Company Number: US-PFIZER INC-2019086827

PATIENT
  Age: 56 Year
  Sex: Female
  Weight: 97.7 kg

DRUGS (4)
  1. HYDROCODONE [Suspect]
     Active Substance: HYDROCODONE
     Indication: PAIN IN EXTREMITY
     Dosage: UNK, AS NEEDED (UP TO 4 TIMES A DAY)
  2. MORPHINE SULFATE. [Suspect]
     Active Substance: MORPHINE SULFATE
     Indication: PAIN IN EXTREMITY
     Dosage: 10 MG, (UP TO 5 TIMES A DAY)
  3. TRAMADOL. [Suspect]
     Active Substance: TRAMADOL
     Indication: PAIN IN EXTREMITY
     Dosage: UNK, AS NEEDED (UP TO 6 TIMES A DAY)
  4. MORPHINE ER [Suspect]
     Active Substance: MORPHINE
     Indication: PAIN IN EXTREMITY
     Dosage: 30 MG, 2X/DAY

REACTIONS (1)
  - Drug ineffective [Unknown]
